FAERS Safety Report 17811429 (Version 2)
Quarter: 2021Q2

REPORT INFORMATION
  Report Type: Spontaneous
  Country: US (occurrence: US)
  Receive Date: 20200521
  Receipt Date: 20210604
  Transmission Date: 20210716
  Serious: No
  Sender: FDA-Public Use
  Company Number: US-PFIZER INC-2019188291

PATIENT
  Age: 48 Year
  Sex: Female

DRUGS (2)
  1. DILANTIN [Suspect]
     Active Substance: PHENYTOIN
     Indication: EPILEPSY
     Dosage: 5 DF, DAILY (2 IN THE MORNING, 1 IN THE AFTERNOON, 2 IN THE EVENING)
     Route: 048
  2. DILANTIN [Suspect]
     Active Substance: PHENYTOIN
     Dosage: 500 MG, DAILY (2 CAPS EVERY MORNING, 1 CAPSULE AT NOON, 2 CAPS AT BEDTIME)
     Route: 048

REACTIONS (1)
  - Memory impairment [Unknown]
